FAERS Safety Report 24863487 (Version 1)
Quarter: 2025Q1

REPORT INFORMATION
  Report Type: Spontaneous
  Country: FR (occurrence: FR)
  Receive Date: 20250120
  Receipt Date: 20250120
  Transmission Date: 20250409
  Serious: Yes (Other)
  Sender: ROCHE
  Company Number: FR-002147023-NVSC2024FR131523

PATIENT

DRUGS (10)
  1. LUCENTIS [Suspect]
     Active Substance: RANIBIZUMAB
     Indication: Product used for unknown indication
     Route: 065
  2. EYLEA [Suspect]
     Active Substance: AFLIBERCEPT
     Indication: Product used for unknown indication
     Route: 065
  3. EYLEA [Suspect]
     Active Substance: AFLIBERCEPT
     Route: 065
     Dates: start: 20240903
  4. EYLEA [Suspect]
     Active Substance: AFLIBERCEPT
     Route: 065
     Dates: start: 20241003
  5. EYLEA [Suspect]
     Active Substance: AFLIBERCEPT
     Route: 065
     Dates: start: 20241105
  6. EYLEA [Suspect]
     Active Substance: AFLIBERCEPT
     Route: 065
     Dates: start: 20241203
  7. EYLEA [Suspect]
     Active Substance: AFLIBERCEPT
     Route: 065
     Dates: start: 20250102
  8. BEOVU [Suspect]
     Active Substance: BROLUCIZUMAB-DBLL
     Indication: Age-related macular degeneration
     Route: 050
     Dates: start: 20240328
  9. BEOVU [Suspect]
     Active Substance: BROLUCIZUMAB-DBLL
     Route: 050
     Dates: start: 20240506
  10. BEOVU [Suspect]
     Active Substance: BROLUCIZUMAB-DBLL
     Route: 050
     Dates: start: 20240604

REACTIONS (8)
  - Retinal vasculitis [Unknown]
  - Iridocyclitis [Unknown]
  - Vitritis [Recovered/Resolved]
  - Vitreous floaters [Recovered/Resolved]
  - Vision blurred [Unknown]
  - Retinal degeneration [Unknown]
  - Retinal vein occlusion [Unknown]
  - Visual acuity reduced [Recovering/Resolving]

NARRATIVE: CASE EVENT DATE: 20240604
